FAERS Safety Report 5140251-4 (Version None)
Quarter: 2006Q4

REPORT INFORMATION
  Report Type: 
  Country: None (occurrence: None)
  Receive Date: 20061025
  Receipt Date: 20061015
  Transmission Date: 20070319
  Serious: Yes (Other)
  Sender: FDA-Public Use
  Company Number: 2006BH013880

PATIENT
  Age: 3 Year
  Sex: Male

DRUGS (1)
  1. SEVOFLURANE [Suspect]
     Indication: INDUCTION OF ANAESTHESIA

REACTIONS (9)
  - BLOOD CALCIUM DECREASED [None]
  - BLOOD PH DECREASED [None]
  - DELAYED RECOVERY FROM ANAESTHESIA [None]
  - HYPERCAPNIA [None]
  - HYPERTHERMIA [None]
  - MUSCLE RIGIDITY [None]
  - MUSCULOSKELETAL STIFFNESS [None]
  - MYRINGOTOMY [None]
  - REFUSAL OF TREATMENT BY RELATIVE [None]
